FAERS Safety Report 18434010 (Version 4)
Quarter: 2022Q2

REPORT INFORMATION
  Report Type: Spontaneous
  Country: US (occurrence: US)
  Receive Date: 20201027
  Receipt Date: 20220621
  Transmission Date: 20220721
  Serious: Yes (Disabling)
  Sender: FDA-Public Use
  Company Number: US-PFIZER INC-2020284375

PATIENT
  Age: 57 Year
  Sex: Female
  Weight: 59.87 kg

DRUGS (5)
  1. XELJANZ [Suspect]
     Active Substance: TOFACITINIB CITRATE
     Indication: Rheumatoid arthritis
     Dosage: 5 MG, 2X/DAY
     Route: 048
  2. MELATONIN [Concomitant]
     Active Substance: MELATONIN
     Dosage: UNK
  3. ARMOUR THYROID [Concomitant]
     Active Substance: THYROID, PORCINE
     Dosage: UNK
  4. TESTOSTERONE [Concomitant]
     Active Substance: TESTOSTERONE
     Dosage: 30MG/1.5ML SOL MD PMP
  5. PROGESTERONE [Concomitant]
     Active Substance: PROGESTERONE
     Dosage: UNK, (100 % POWDER)

REACTIONS (3)
  - Gait disturbance [Unknown]
  - Pain [Unknown]
  - Gastrointestinal disorder [Unknown]
